FAERS Safety Report 6154880-2 (Version None)
Quarter: 2009Q2

REPORT INFORMATION
  Report Type: 
  Country: None (occurrence: None)
  Receive Date: 20090414
  Receipt Date: 20090403
  Transmission Date: 20091009
  Serious: Yes (Other)
  Sender: FDA-Public Use
  Company Number: PHHY2009BR12881

PATIENT
  Sex: Male
  Weight: 66 kg

DRUGS (2)
  1. VALSARTAN [Suspect]
  2. SIMVASTATIN [Suspect]

REACTIONS (4)
  - CATHETERISATION CARDIAC [None]
  - SCINTIGRAPHY [None]
  - STENT PLACEMENT [None]
  - STRESS [None]
